FAERS Safety Report 13982075 (Version 1)
Quarter: 2017Q3

REPORT INFORMATION
  Report Type: Spontaneous
  Country: US (occurrence: US)
  Receive Date: 20170918
  Receipt Date: 20170918
  Transmission Date: 20171128
  Serious: Yes (Other)
  Sender: FDA-Public Use
  Company Number: US-BAYER-2017-178114

PATIENT
  Age: 14 Year
  Sex: Male

DRUGS (3)
  1. CLARITIN [Suspect]
     Active Substance: LORATADINE
     Indication: NASAL CONGESTION
     Dosage: 5 ML, UNK
     Route: 048
     Dates: start: 20170912
  2. PEGATRON [Concomitant]
     Active Substance: PEGINTERFERON ALFA-2B\RIBAVIRIN
  3. CLARITIN [Suspect]
     Active Substance: LORATADINE
     Indication: NASAL CONGESTION
     Dosage: 2.5 ML, UNK
     Route: 048
     Dates: start: 20170913, end: 20170913

REACTIONS (7)
  - Seizure [Recovered/Resolved]
  - Wrong technique in product usage process [None]
  - Product use in unapproved indication [Unknown]
  - Somnolence [Recovered/Resolved]
  - Seizure [Recovered/Resolved]
  - Underdose [Unknown]
  - Underdose [Unknown]

NARRATIVE: CASE EVENT DATE: 20170912
